FAERS Safety Report 14879919 (Version 1)
Quarter: 2018Q2

REPORT INFORMATION
  Report Type: Spontaneous
  Country: GB (occurrence: GB)
  Receive Date: 20180511
  Receipt Date: 20180511
  Transmission Date: 20180711
  Serious: Yes (Hospitalization, Other)
  Sender: FDA-Public Use
  Company Number: GB-SA-2018SA106089

PATIENT
  Sex: Male

DRUGS (9)
  1. 5 FU [Suspect]
     Active Substance: FLUOROURACIL
     Indication: METASTASES TO LIVER
     Route: 042
  2. LEUCOVORIN. [Suspect]
     Active Substance: LEUCOVORIN
     Indication: RECTOSIGMOID CANCER STAGE IV
     Route: 042
  3. CAPECITABINE. [Suspect]
     Active Substance: CAPECITABINE
     Route: 065
  4. AFLIBERCEPT [Suspect]
     Active Substance: AFLIBERCEPT
     Indication: METASTASES TO LIVER
     Route: 042
  5. AFLIBERCEPT [Suspect]
     Active Substance: AFLIBERCEPT
     Indication: RECTOSIGMOID CANCER STAGE IV
     Route: 042
  6. IRINOTECAN [Suspect]
     Active Substance: IRINOTECAN
     Indication: RECTOSIGMOID CANCER STAGE IV
     Route: 042
  7. 5 FU [Suspect]
     Active Substance: FLUOROURACIL
     Indication: RECTOSIGMOID CANCER STAGE IV
     Route: 042
  8. LEUCOVORIN. [Suspect]
     Active Substance: LEUCOVORIN
     Indication: METASTASES TO LIVER
     Route: 042
  9. BEVACIZUMAB. [Suspect]
     Active Substance: BEVACIZUMAB
     Route: 065

REACTIONS (23)
  - Leukocytosis [Recovered/Resolved]
  - Prothrombin level decreased [Recovered/Resolved]
  - Inflammation [Recovered/Resolved]
  - Hypotension [Recovered/Resolved]
  - C-reactive protein increased [Recovered/Resolved]
  - Necrotising fasciitis [Recovered/Resolved]
  - Blood creatinine increased [Recovered/Resolved]
  - Erythema [Recovered/Resolved]
  - Off label use [Unknown]
  - Induration [Recovered/Resolved]
  - Chills [Recovered/Resolved]
  - Neutrophilia [Recovered/Resolved]
  - Blood creatine phosphokinase increased [Recovered/Resolved]
  - Pyrexia [Recovered/Resolved]
  - Tenderness [Recovered/Resolved]
  - Renal failure [Recovered/Resolved]
  - Klebsiella infection [Recovered/Resolved]
  - Proteus infection [Recovered/Resolved]
  - Tachycardia [Recovered/Resolved]
  - Blood lactic acid increased [Recovered/Resolved]
  - Clostridial infection [Recovered/Resolved]
  - Candida infection [Recovered/Resolved]
  - Coagulopathy [Recovered/Resolved]
